FAERS Safety Report 10015804 (Version 3)
Quarter: 2014Q2

REPORT INFORMATION
  Report Type: Spontaneous
  Country: US (occurrence: US)
  Receive Date: 20140317
  Receipt Date: 20140515
  Transmission Date: 20141212
  Serious: Yes (Death, Hospitalization)
  Sender: FDA-Public Use
  Company Number: US-GLAXOSMITHKLINE-A1064128A

PATIENT
  Age: 70 Year
  Sex: Male

DRUGS (5)
  1. ARIXTRA [Suspect]
     Indication: THROMBOSIS
     Dosage: 7.5MG PER DAY
     Route: 058
     Dates: start: 2012, end: 20140221
  2. LOVENOX [Suspect]
     Indication: THROMBOSIS
     Dosage: 120MG PER DAY
     Route: 042
     Dates: start: 20140221
  3. VIMPAT [Concomitant]
  4. HYDROMORPHONE [Concomitant]
  5. HYDROCODONE [Concomitant]

REACTIONS (8)
  - Death [Fatal]
  - Thrombectomy [Unknown]
  - Pain [Unknown]
  - Thrombosis [Unknown]
  - Skin discolouration [Unknown]
  - Treatment failure [Unknown]
  - Drug prescribing error [Unknown]
  - Product quality issue [Unknown]
